FAERS Safety Report 5146401-8 (Version None)
Quarter: 2006Q4

REPORT INFORMATION
  Report Type: 
  Country: None (occurrence: None)
  Receive Date: 20061102
  Receipt Date: 20061020
  Transmission Date: 20070319
  Serious: Yes (Death)
  Sender: FDA-Public Use
  Company Number: 2006129053

PATIENT
  Age: 11 Month
  Sex: Female

DRUGS (1)
  1. BENADRYL [Suspect]
     Dates: start: 20050101, end: 20051201

REACTIONS (4)
  - DRUG SCREEN POSITIVE [None]
  - DRUG TOXICITY [None]
  - LOSS OF CONSCIOUSNESS [None]
  - PULMONARY OEDEMA [None]
